FAERS Safety Report 13451196 (Version 2)
Quarter: 2019Q1

REPORT INFORMATION
  Report Type: Spontaneous
  Country: SE (occurrence: SE)
  Receive Date: 20170418
  Receipt Date: 20190326
  Transmission Date: 20190417
  Serious: Yes (Hospitalization)
  Sender: FDA-Public Use
  Company Number: SE-ACCORD-050328

PATIENT
  Age: 77 Year
  Sex: Female

DRUGS (9)
  1. DIAMOX SEQUELS [Concomitant]
     Active Substance: ACETAZOLAMIDE
  2. MORPHINE [Concomitant]
     Active Substance: MORPHINE
  3. MORFIN MEDA [Concomitant]
     Active Substance: MORPHINE SULFATE
  4. MITOMYCIN. [Suspect]
     Active Substance: MITOMYCIN
     Indication: ANAL CANCER
     Route: 042
     Dates: start: 20150706, end: 20150706
  5. OVIAXAN [Concomitant]
  6. IBUMETIN [Concomitant]
     Active Substance: IBUPROFEN
  7. FLUOROURACIL ACCORD [Suspect]
     Active Substance: FLUOROURACIL
     Indication: ANAL CANCER
     Route: 042
     Dates: start: 20150706, end: 20150706
  8. LOPERAMID MYLAN [Concomitant]
     Active Substance: LOPERAMIDE HYDROCHLORIDE
  9. STILNOCT [Concomitant]
     Active Substance: ZOLPIDEM TARTRATE

REACTIONS (1)
  - Agranulocytosis [Recovered/Resolved]

NARRATIVE: CASE EVENT DATE: 20150715
